FAERS Safety Report 9456898 (Version 1)
Quarter: 2013Q3

REPORT INFORMATION
  Report Type: Spontaneous
  Country: FR (occurrence: FR)
  Receive Date: 20130813
  Receipt Date: 20130813
  Transmission Date: 20140515
  Serious: Yes (Life-Threatening, Hospitalization)
  Sender: FDA-Public Use
  Company Number: FR-RB-057067-13

PATIENT
  Age: 36 Year
  Sex: Female

DRUGS (2)
  1. SUBUTEX [Suspect]
     Indication: PRODUCT USED FOR UNKNOWN INDICATION
     Dosage: DOSING DETAILS UNKNOWN
     Route: 042
     Dates: end: 2012
  2. SUBUTEX [Suspect]
     Dosage: DOSING DETAILS UNKNOWN
     Route: 065
     Dates: start: 201207

REACTIONS (8)
  - Endocarditis staphylococcal [Recovered/Resolved with Sequelae]
  - Staphylococcal sepsis [Unknown]
  - Coma [Unknown]
  - Pulmonary embolism [Unknown]
  - Haemoptysis [Unknown]
  - Drug withdrawal syndrome [Recovered/Resolved]
  - Haemothorax [Unknown]
  - Intentional drug misuse [Unknown]
